FAERS Safety Report 25047381 (Version 1)
Quarter: 2025Q1

REPORT INFORMATION
  Report Type: Report from Study
  Country: VN (occurrence: VN)
  Receive Date: 20250306
  Receipt Date: 20250306
  Transmission Date: 20250409
  Serious: Yes (Other)
  Sender: TAKEDA
  Company Number: VN-JNJFOC-20241016701

PATIENT
  Age: 65 Year
  Sex: Male
  Weight: 64 kg

DRUGS (3)
  1. BORTEZOMIB [Suspect]
     Active Substance: BORTEZOMIB
     Indication: Plasma cell myeloma recurrent
  2. DEXAMETHASONE [Suspect]
     Active Substance: DEXAMETHASONE
     Indication: Plasma cell myeloma recurrent
  3. DARZALEX [Suspect]
     Active Substance: DARATUMUMAB
     Indication: Plasma cell myeloma recurrent

REACTIONS (3)
  - Acute hepatitis B [Unknown]
  - Dengue fever [Unknown]
  - Off label use [Unknown]

NARRATIVE: CASE EVENT DATE: 20241003
